FAERS Safety Report 18525752 (Version 1)
Quarter: 2020Q4

REPORT INFORMATION
  Report Type: Other
  Country: CA (occurrence: CA)
  Receive Date: 20201119
  Receipt Date: 20201119
  Transmission Date: 20210114
  Serious: Yes (Other)
  Sender: FDA-Public Use
  Company Number: CA-CELLTRION INC.-2020CA031598

PATIENT

DRUGS (15)
  1. METHYLPREDNISOLONE. [Concomitant]
     Active Substance: METHYLPREDNISOLONE
     Dosage: 100 MILLIGRAM
     Route: 042
  2. NIFEDIPINE. [Concomitant]
     Active Substance: NIFEDIPINE
  3. ARAVA [Concomitant]
     Active Substance: LEFLUNOMIDE
  4. HUMIRA [Concomitant]
     Active Substance: ADALIMUMAB
  5. PREDNISONE. [Concomitant]
     Active Substance: PREDNISONE
  6. CITALOPRAM [Concomitant]
     Active Substance: CITALOPRAM HYDROBROMIDE
  7. DICLOFENAC [Concomitant]
     Active Substance: DICLOFENAC
  8. RABEPRAZOLE [Concomitant]
     Active Substance: RABEPRAZOLE
  9. RITUXIMAB (UNKNOWN) [Suspect]
     Active Substance: RITUXIMAB
     Indication: RHEUMATOID ARTHRITIS
     Dosage: 1000 MILLIGRAM
     Route: 041
  10. CRESTOR [Concomitant]
     Active Substance: ROSUVASTATIN CALCIUM
  11. ACETAMINOPHEN. [Concomitant]
     Active Substance: ACETAMINOPHEN
     Dosage: 650 MILLIGRAM
     Route: 048
  12. SUCRALFATE. [Concomitant]
     Active Substance: SUCRALFATE
  13. BETAHISTINE [Concomitant]
     Active Substance: BETAHISTINE
  14. DIPHENHYDRAMINE HCL [Concomitant]
     Active Substance: DIPHENHYDRAMINE HYDROCHLORIDE
     Dosage: 50 MILLIGRAM
     Route: 048
  15. PANTOPRAZOLE SODIUM. [Concomitant]
     Active Substance: PANTOPRAZOLE SODIUM

REACTIONS (6)
  - Gastritis [Recovered/Resolved]
  - Gastrointestinal fungal infection [Recovered/Resolved]
  - Gastric infection [Recovered/Resolved]
  - Weight decreased [Recovered/Resolved]
  - Hiatus hernia [Recovered/Resolved]
  - Infection parasitic [Recovered/Resolved]
